FAERS Safety Report 6872236-1 (Version None)
Quarter: 2010Q3

REPORT INFORMATION
  Report Type: 
  Country: None (occurrence: None)
  Receive Date: 20100721
  Receipt Date: 20100710
  Transmission Date: 20110219
  Serious: Yes (Life-Threatening, Hospitalization, Other)
  Sender: FDA-Public Use
  Company Number: 2010AP001424

PATIENT
  Age: 71 Year
  Sex: Male

DRUGS (4)
  1. AMIODARONE HYDROCHLORIDE [Suspect]
     Indication: ARRHYTHMIA
     Dosage: 150 MG; IV, 1 MG/MIN; Q6H; IV, 0.5 MG/MIN;, 200 MG; BID; PO
  2. TACROLIMUS [Suspect]
  3. DOBUTAMINE HCL [Concomitant]
  4. DIURETICS [Concomitant]

REACTIONS (4)
  - DRUG INTERACTION [None]
  - ELECTROCARDIOGRAM QT PROLONGED [None]
  - TORSADE DE POINTES [None]
  - VENTRICULAR FIBRILLATION [None]
